FAERS Safety Report 19089366 (Version 1)
Quarter: 2021Q2

REPORT INFORMATION
  Report Type: Spontaneous
  Country: US (occurrence: US)
  Receive Date: 20210403
  Receipt Date: 20210403
  Transmission Date: 20210717
  Serious: No
  Sender: FDA-Public Use
  Company Number: US-ASTRAZENECA-2021A131373

PATIENT
  Sex: Female

DRUGS (2)
  1. BYDUREON BCISE [Suspect]
     Active Substance: EXENATIDE
     Route: 058
  2. FARXIGA [Suspect]
     Active Substance: DAPAGLIFLOZIN PROPANEDIOL
     Route: 048

REACTIONS (7)
  - Device malfunction [Unknown]
  - Cystitis [Unknown]
  - Fungal infection [Unknown]
  - Memory impairment [Unknown]
  - Product dose omission issue [Unknown]
  - Device leakage [Unknown]
  - Communication disorder [Unknown]
